FAERS Safety Report 9520153 (Version 1)
Quarter: 2013Q1

REPORT INFORMATION
  Report Type: Spontaneous
  Country: US (occurrence: None)
  Receive Date: 20130305
  Receipt Date: 20130305
  Transmission Date: 20140127
  Serious: No
  Sender: FDA-Public Use
  Company Number: 163-21880-12080674

PATIENT
  Age: 62 Year
  Sex: Female

DRUGS (2)
  1. REVLIMID (LENALIDOMIDE) (CAPSULES) [Suspect]
     Indication: PLASMA CELL MYELOMA
     Dosage: 10MG, 1 IN 1D, PO
     Route: 048
     Dates: start: 201012
  2. CYMBALTA (DULOXETINE HYDROCHLORIDE) [Concomitant]

REACTIONS (4)
  - Fatigue [None]
  - Pyrexia [None]
  - Oropharyngeal pain [None]
  - Somnolence [None]
